FAERS Safety Report 24140883 (Version 3)
Quarter: 2024Q3

REPORT INFORMATION
  Report Type: Spontaneous
  Country: US (occurrence: US)
  Receive Date: 20240726
  Receipt Date: 20240911
  Transmission Date: 20241016
  Serious: No
  Sender: NOVARTIS
  Company Number: US-002147023-NVSC2024US151909

PATIENT
  Sex: Male

DRUGS (1)
  1. COSENTYX [Suspect]
     Active Substance: SECUKINUMAB
     Indication: Product used for unknown indication
     Dosage: 300 MG, QW
     Route: 065
     Dates: start: 20240720

REACTIONS (6)
  - Drug hypersensitivity [Unknown]
  - Throat irritation [Unknown]
  - Sneezing [Unknown]
  - Secretion discharge [Unknown]
  - Burning sensation [Unknown]
  - Incorrect disposal of product [Unknown]
